FAERS Safety Report 5763604-X (Version None)
Quarter: 2008Q2

REPORT INFORMATION
  Report Type: 
  Country: None (occurrence: None)
  Receive Date: 20080610
  Receipt Date: 20080603
  Transmission Date: 20081010
  Serious: Yes (Death, Hospitalization, Other)
  Sender: FDA-Public Use
  Company Number: PHHY2008BR09871

PATIENT

DRUGS (5)
  1. FORASEQ [Suspect]
     Indication: BRONCHITIS
     Dosage: UNK
     Dates: start: 20040101
  2. FORASEQ [Suspect]
     Indication: CHRONIC OBSTRUCTIVE PULMONARY DISEASE
  3. DUOVENT [Concomitant]
  4. TALOFILINA [Concomitant]
  5. PREDNISONE TAB [Concomitant]

REACTIONS (13)
  - ABDOMINAL DISTENSION [None]
  - CARDIAC ARREST [None]
  - CHRONIC OBSTRUCTIVE PULMONARY DISEASE [None]
  - CRANIAL OPERATION [None]
  - CRANIOTABES [None]
  - EMPHYSEMA [None]
  - LUNG DISORDER [None]
  - PAIN [None]
  - RESPIRATORY DISORDER [None]
  - RESPIRATORY FAILURE [None]
  - RESPIRATORY TRACT INFECTION [None]
  - URINARY TRACT INFECTION [None]
  - WHITE BLOOD CELL COUNT INCREASED [None]
